FAERS Safety Report 10409477 (Version 1)
Quarter: 2014Q3

REPORT INFORMATION
  Report Type: Spontaneous
  Country: TR (occurrence: None)
  Receive Date: 20140822
  Receipt Date: 20140822
  Transmission Date: 20150326
  Serious: Yes (Hospitalization)
  Sender: FDA-Public Use
  Company Number: TR-ZYDUS-004241

PATIENT
  Age: 70 Year
  Sex: Female

DRUGS (1)
  1. WARFARIN (WARFARIN) [Suspect]
     Active Substance: WARFARIN
     Route: 048

REACTIONS (2)
  - International normalised ratio increased [None]
  - Tongue haematoma [None]
